FAERS Safety Report 7783560-2 (Version None)
Quarter: 2011Q3

REPORT INFORMATION
  Report Type: 
  Country: None (occurrence: None)
  Receive Date: 20110928
  Receipt Date: 20110801
  Transmission Date: 20111222
  Serious: No
  Sender: FDA-Public Use
  Company Number: US-MYLANLABS-2011S1015745

PATIENT
  Age: 53 Year
  Sex: Female
  Weight: 61.24 kg

DRUGS (5)
  1. ACIPHEX [Concomitant]
  2. LETROZOLE [Suspect]
     Indication: BREAST CANCER
     Route: 048
     Dates: start: 20110701
  3. ZETIA [Concomitant]
  4. TRAZODONE HYDROCHLORIDE [Concomitant]
  5. CLARITIN-D 24 HOUR [Concomitant]

REACTIONS (2)
  - DRY MOUTH [None]
  - CANDIDIASIS [None]
